FAERS Safety Report 17814109 (Version 1)
Quarter: 2020Q2

REPORT INFORMATION
  Report Type: Spontaneous
  Country: US (occurrence: US)
  Receive Date: 20200522
  Receipt Date: 20200522
  Transmission Date: 20200714
  Serious: Yes (Other)
  Sender: FDA-Public Use
  Company Number: US-ROCHE-2604031

PATIENT
  Sex: Female
  Weight: 82.63 kg

DRUGS (4)
  1. OCREVUS [Suspect]
     Active Substance: OCRELIZUMAB
     Indication: RELAPSING MULTIPLE SCLEROSIS
     Dosage: YES
     Route: 042
     Dates: start: 201910
  2. GILENYA [Concomitant]
     Active Substance: FINGOLIMOD HYDROCHLORIDE
  3. TYSABRI [Concomitant]
     Active Substance: NATALIZUMAB
  4. BETAFERON [Concomitant]
     Active Substance: INTERFERON BETA-1B

REACTIONS (5)
  - Uterine leiomyoma [Not Recovered/Not Resolved]
  - Cognitive disorder [Unknown]
  - Hunger [Unknown]
  - Menorrhagia [Not Recovered/Not Resolved]
  - Multiple sclerosis relapse [Recovered/Resolved]
